FAERS Safety Report 7542018-6 (Version None)
Quarter: 2011Q2

REPORT INFORMATION
  Report Type: 
  Country: None (occurrence: None)
  Receive Date: 20110613
  Receipt Date: 20110602
  Transmission Date: 20111010
  Serious: Yes (Other)
  Sender: FDA-Public Use
  Company Number: AU-ASTRAZENECA-2011SE23661

PATIENT
  Age: 76 Year
  Sex: Male

DRUGS (5)
  1. MOBIC [Concomitant]
  2. LIPITOR [Concomitant]
  3. CALCIUM CARBONATE [Concomitant]
  4. VERAPAMIL [Concomitant]
  5. ZOLADEX [Suspect]
     Route: 058

REACTIONS (2)
  - SKIN CANCER [None]
  - NASAL OPERATION [None]
